FAERS Safety Report 25515872 (Version 2)
Quarter: 2025Q3

REPORT INFORMATION
  Report Type: Report from Study
  Country: CA (occurrence: CA)
  Receive Date: 20250704
  Receipt Date: 20250715
  Transmission Date: 20251020
  Serious: Yes (Other)
  Sender: CELLTRION
  Company Number: CA-CELLTRION INC.-2025CA000751

PATIENT

DRUGS (2)
  1. INFLIXIMAB-DYYB [Suspect]
     Active Substance: INFLIXIMAB-DYYB
     Indication: Crohn^s disease
     Route: 058
     Dates: start: 20250101
  2. INFLIXIMAB-DYYB [Suspect]
     Active Substance: INFLIXIMAB-DYYB
     Route: 058

REACTIONS (14)
  - Neck pain [Recovered/Resolved]
  - Dermatitis acneiform [Recovered/Resolved]
  - Feeling abnormal [Recovered/Resolved]
  - Bone pain [Recovered/Resolved]
  - Eye pain [Recovered/Resolved]
  - Stress [Recovered/Resolved]
  - Influenza [Recovered/Resolved]
  - Nasopharyngitis [Recovered/Resolved]
  - Headache [Recovered/Resolved]
  - Hypoaesthesia [Recovered/Resolved]
  - Fatigue [Recovered/Resolved]
  - Cough [Recovered/Resolved]
  - Therapeutic product effect delayed [Recovered/Resolved]
  - Product distribution issue [Recovered/Resolved]
